FAERS Safety Report 13465807 (Version 4)
Quarter: 2017Q3

REPORT INFORMATION
  Report Type: Report from Study
  Country: UY (occurrence: UY)
  Receive Date: 20170421
  Receipt Date: 20170822
  Transmission Date: 20171127
  Serious: Yes (Death, Hospitalization, Other)
  Sender: FDA-Public Use
  Company Number: UY-SHIRE-UY201708739

PATIENT
  Age: 41 Year
  Sex: Male

DRUGS (1)
  1. VPRIV [Suspect]
     Active Substance: VELAGLUCERASE ALFA
     Indication: GAUCHER^S DISEASE
     Dosage: 60 IU/KG, UNKNOWN
     Route: 041
     Dates: end: 20170316

REACTIONS (3)
  - Cough [Unknown]
  - Pyrexia [Unknown]
  - Sepsis [Fatal]

NARRATIVE: CASE EVENT DATE: 20170328
